FAERS Safety Report 9522726 (Version 2)
Quarter: 2013Q3

REPORT INFORMATION
  Report Type: Spontaneous
  Country: DE (occurrence: None)
  Receive Date: 20130827
  Receipt Date: 20130904
  Transmission Date: 20140515
  Serious: Yes (Other)
  Sender: FDA-Public Use
  Company Number: 2013037651

PATIENT
  Age: 15 Year
  Sex: Male

DRUGS (1)
  1. INTRAVENOUS IMMUNOGLOBULIN (IMMUNE GLOBULIN INTRAVENOUS (HUMAN)) [Suspect]
     Indication: GUILLAIN-BARRE SYNDROME

REACTIONS (7)
  - Drug ineffective for unapproved indication [None]
  - IIIrd nerve paresis [None]
  - Gait disturbance [None]
  - Ophthalmoplegia [None]
  - Eyelid ptosis [None]
  - Autoimmune thyroiditis [None]
  - Myasthenia gravis [None]
